FAERS Safety Report 9533700 (Version 1)
Quarter: 2013Q1

REPORT INFORMATION
  Report Type: Spontaneous
  Country: US (occurrence: None)
  Receive Date: 20130318
  Receipt Date: 20130318
  Transmission Date: 20140127
  Serious: Yes (Other)
  Sender: FDA-Public Use
  Company Number: 2012SP036253

PATIENT
  Age: 48 Year
  Sex: Male

DRUGS (1)
  1. PEGINTRON (PEGINTERFERON ALFA-2B) POWDER FOR INJECTION [Suspect]
     Indication: CHRONIC HEPATITIS C
     Route: 058
     Dates: start: 20120531

REACTIONS (1)
  - Rash pruritic [None]
